FAERS Safety Report 5815420-8 (Version None)
Quarter: 2008Q3

REPORT INFORMATION
  Report Type: 
  Country: None (occurrence: None)
  Receive Date: 20080715
  Receipt Date: 20080701
  Transmission Date: 20090109
  Serious: Yes (Hospitalization)
  Sender: FDA-Public Use
  Company Number: A0622007A

PATIENT
  Age: 42 Year
  Sex: Male

DRUGS (3)
  1. IMITREX [Suspect]
     Indication: MIGRAINE
     Dosage: 200 MG / PER DAY / ORAL
     Route: 048
  2. DICLOFENAC SODIUM [Concomitant]
  3. ZOPICLONE [Suspect]

REACTIONS (8)
  - ASTHENIA [None]
  - COMPARTMENT SYNDROME [None]
  - CYANOSIS [None]
  - HEART RATE INCREASED [None]
  - HYPOAESTHESIA [None]
  - INFLUENZA LIKE ILLNESS [None]
  - PAIN IN EXTREMITY [None]
  - SULPHAEMOGLOBINAEMIA [None]
